FAERS Safety Report 21978162 (Version 4)
Quarter: 2023Q2

REPORT INFORMATION
  Report Type: Report from Study
  Country: CN (occurrence: CN)
  Receive Date: 20230210
  Receipt Date: 20230529
  Transmission Date: 20230722
  Serious: Yes (Hospitalization)
  Sender: FDA-Public Use
  Company Number: CN-PFIZER INC-PV202300025468

PATIENT
  Age: 72 Year
  Sex: Female

DRUGS (29)
  1. PACLITAXEL [Suspect]
     Active Substance: PACLITAXEL
     Indication: Triple negative breast cancer
     Dosage: 103.2 MG, WEEKLY FORMULATION: INFUSION
     Route: 042
     Dates: start: 20230110, end: 20230110
  2. PACLITAXEL [Suspect]
     Active Substance: PACLITAXEL
     Dosage: 103.2 MG, WEEKLY FORMULATION: INFUSION
     Route: 042
     Dates: start: 20230118, end: 20230118
  3. PACLITAXEL [Suspect]
     Active Substance: PACLITAXEL
     Dosage: 103.2 MG, WEEKLY FORMULATION: INFUSION
     Route: 042
     Dates: start: 20230202, end: 20230202
  4. PACLITAXEL [Suspect]
     Active Substance: PACLITAXEL
     Dosage: 102.4 MG, WEEKLY FORMULATION: INFUSION
     Route: 042
     Dates: start: 20230217, end: 20230217
  5. PACLITAXEL [Suspect]
     Active Substance: PACLITAXEL
     Dosage: 102.4 MG, WEEKLY FORMULATION: INFUSION
     Route: 042
     Dates: start: 20230224, end: 20230224
  6. PACLITAXEL [Suspect]
     Active Substance: PACLITAXEL
     Dosage: 102.4 MG, WEEKLY FORMULATION: INFUSION
     Route: 042
     Dates: start: 20230309, end: 20230309
  7. INVESTIGATIONAL PRODUCT [Suspect]
     Active Substance: INVESTIGATIONAL PRODUCT
     Indication: Triple negative breast cancer
     Dosage: 2X/DAY FORMULATION: TABLET
     Route: 048
     Dates: start: 20230111, end: 20230114
  8. INVESTIGATIONAL PRODUCT [Suspect]
     Active Substance: INVESTIGATIONAL PRODUCT
     Dosage: 2X/DAY FORMULATION: TABLET
     Route: 048
     Dates: start: 20230119, end: 20230122
  9. INVESTIGATIONAL PRODUCT [Suspect]
     Active Substance: INVESTIGATIONAL PRODUCT
     Dosage: 2X/DAY FORMULATION: TABLET
     Route: 048
     Dates: start: 20230203, end: 20230206
  10. INVESTIGATIONAL PRODUCT [Suspect]
     Active Substance: INVESTIGATIONAL PRODUCT
     Dosage: 2X/DAY FORMULATION: TABLET
     Route: 048
     Dates: start: 20230218, end: 20230221
  11. INVESTIGATIONAL PRODUCT [Suspect]
     Active Substance: INVESTIGATIONAL PRODUCT
     Dosage: 2X/DAY FORMULATION: TABLET
     Route: 048
     Dates: start: 20230225, end: 20230228
  12. DEXAMETHASONE SODIUM PHOSPHATE [Concomitant]
     Active Substance: DEXAMETHASONE SODIUM PHOSPHATE
     Indication: Prophylaxis
     Dosage: 10 MG, ONCE, INTRAVENOUS (NOT OTHERWISE SPECIFIED)
     Route: 042
     Dates: start: 20230110, end: 20230110
  13. DEXAMETHASONE SODIUM PHOSPHATE [Concomitant]
     Active Substance: DEXAMETHASONE SODIUM PHOSPHATE
     Dosage: 10 MG, ONCE, INTRAVENOUS (NOT OTHERWISE SPECIFIED)
     Route: 042
     Dates: start: 20230118, end: 20230118
  14. PROMETHAZINE HYDROCHLORIDE [Concomitant]
     Active Substance: PROMETHAZINE HYDROCHLORIDE
     Indication: Prophylaxis
     Dosage: 25 MG, ONCE
     Route: 030
     Dates: start: 20230110, end: 20230110
  15. PROMETHAZINE HYDROCHLORIDE [Concomitant]
     Active Substance: PROMETHAZINE HYDROCHLORIDE
     Dosage: 25 MG, ONCE
     Route: 030
     Dates: start: 20230118, end: 20230118
  16. ONDANSETRON HYDROCHLORIDE [Concomitant]
     Active Substance: ONDANSETRON HYDROCHLORIDE
     Indication: Prophylaxis
     Dosage: 8 MG, ONCE INTRAVENOUS (NOT OTHERWISE SPECIFIED)
     Route: 042
     Dates: start: 20230110, end: 20230110
  17. ONDANSETRON HYDROCHLORIDE [Concomitant]
     Active Substance: ONDANSETRON HYDROCHLORIDE
     Indication: Antiemetic supportive care
     Dosage: 8 MG, ONCE INTRAVENOUS (NOT OTHERWISE SPECIFIED)
     Route: 042
     Dates: start: 20230118, end: 20230118
  18. CALCIUM/COLECALCIFEROL/ZOLEDRONIC ACID [Concomitant]
     Indication: Radiotherapy to bone
     Dosage: 4 MG ONCE   INTRAVENOUS (NOT OTHERWISE SPECIFIED)
     Route: 042
     Dates: start: 20230109, end: 20230109
  19. ALGINIC ACID/CIMETIDINE [Concomitant]
     Indication: Gastritis
     Dosage: 2 G, ONCE  INTRAVENOUS (NOT OTHERWISE SPECIFIED)
     Route: 042
     Dates: start: 20230110, end: 20230110
  20. ALGINIC ACID/CIMETIDINE [Concomitant]
     Dosage: 2 G, ONCE  INTRAVENOUS (NOT OTHERWISE SPECIFIED)
     Route: 042
     Dates: start: 20230118, end: 20230118
  21. APOVIT VITAMIN C [Concomitant]
     Indication: Nutritional supplementation
     Dosage: 3 G, ONCE INTRAVENOUS (NOT OTHERWISE SPECIFIED)
     Route: 042
     Dates: start: 20230110, end: 20230110
  22. APOVIT VITAMIN C [Concomitant]
     Dosage: 3 G, ONCE INTRAVENOUS (NOT OTHERWISE SPECIFIED)
     Route: 042
     Dates: start: 20230127
  23. ISONIAZID/PYRIDOXINE HYDROCHLORIDE [Concomitant]
     Indication: Nutritional supplementation
     Dosage: 2 G, ONCE  INTRAVENOUS (NOT OTHERWISE SPECIFIED)
     Route: 042
     Dates: start: 20230110, end: 20230110
  24. ISONIAZID/PYRIDOXINE HYDROCHLORIDE [Concomitant]
     Dosage: 2 G, ONCE  INTRAVENOUS (NOT OTHERWISE SPECIFIED)
     Route: 042
     Dates: start: 20230127
  25. POTASSIUM CHLORIDE\SODIUM CHLORIDE [Concomitant]
     Active Substance: POTASSIUM CHLORIDE\SODIUM CHLORIDE
     Indication: Nutritional supplementation
     Dosage: 1.5 G, ONCE  INTRAVENOUS (NOT OTHERWISE SPECIFIED)
     Route: 042
     Dates: start: 20230110, end: 20230110
  26. POTASSIUM CHLORIDE\SODIUM CHLORIDE [Concomitant]
     Active Substance: POTASSIUM CHLORIDE\SODIUM CHLORIDE
     Dosage: 1.5 G, ONCE  INTRAVENOUS (NOT OTHERWISE SPECIFIED)
     Route: 042
     Dates: start: 20230127
  27. POTASSIUM CHLORIDE [Concomitant]
     Active Substance: POTASSIUM CHLORIDE
     Indication: Blood potassium decreased
     Dosage: 1 G, 3X/DAY
     Route: 048
     Dates: start: 20230118
  28. BACILLUS COAGULANS/DICYCLOVERINE HYDROCHLORIDE/LOPERAMIDE HYDROCHLORID [Concomitant]
     Indication: Prophylaxis against diarrhoea
     Dosage: 2 DF, ONCE
     Route: 048
     Dates: start: 20230120, end: 20230120
  29. BACILLUS COAGULANS/DICYCLOVERINE HYDROCHLORIDE/LOPERAMIDE HYDROCHLORID [Concomitant]
     Dosage: 2 DF, ONCE
     Route: 048
     Dates: start: 20230121, end: 20230121

REACTIONS (3)
  - Hypokalaemia [Recovered/Resolved]
  - Hypocalcaemia [Recovered/Resolved]
  - Hypophosphataemia [Recovered/Resolved]

NARRATIVE: CASE EVENT DATE: 20230127
